FAERS Safety Report 5572889-4 (Version None)
Quarter: 2007Q4

REPORT INFORMATION
  Report Type: 
  Country: None (occurrence: None)
  Receive Date: 20071223
  Receipt Date: 20071218
  Transmission Date: 20080405
  Serious: Yes (Death, Other)
  Sender: FDA-Public Use
  Company Number: PHEH2005US10613

PATIENT
  Age: 65 Year
  Sex: Female
  Weight: 64.399 kg

DRUGS (4)
  1. ZOMETA [Suspect]
     Indication: MULTIPLE MYELOMA
     Dosage: 3 MG, Q4WEEKS
     Route: 042
  2. ZOMETA [Suspect]
     Dosage: 4MG  Q4WEEKS
     Dates: start: 20030601, end: 20050801
  3. PERCOCET [Concomitant]
  4. PROCRIT [Concomitant]

REACTIONS (11)
  - BONE DISORDER [None]
  - BONE LESION [None]
  - DEATH [None]
  - ERYTHEMA [None]
  - GINGIVAL INFECTION [None]
  - JAW DISORDER [None]
  - OEDEMA MOUTH [None]
  - OSTEITIS [None]
  - OSTEOMYELITIS [None]
  - OSTEONECROSIS [None]
  - PAIN IN JAW [None]
